FAERS Safety Report 5775759-1 (Version None)
Quarter: 2008Q2

REPORT INFORMATION
  Report Type: 
  Country: None (occurrence: None)
  Receive Date: 20080612
  Receipt Date: 20080523
  Transmission Date: 20081010
  Serious: Yes (Hospitalization)
  Sender: FDA-Public Use
  Company Number: DSA_31951_2008

PATIENT
  Sex: Female

DRUGS (6)
  1. HERBESSER R (HERBESSER R (TANABE) - DILTIAZEM HYDROCHLORIDE) (NOT SPEC [Suspect]
     Indication: PRINZMETAL ANGINA
     Dosage: (DF ORAL), (100 MG ORAL)
     Route: 048
     Dates: start: 20080410, end: 20080424
  2. HERBESSER R (HERBESSER R (TANABE) - DILTIAZEM HYDROCHLORIDE) (NOT SPEC [Suspect]
     Indication: PRINZMETAL ANGINA
     Dosage: (DF ORAL), (100 MG ORAL)
     Route: 048
     Dates: start: 20060101
  3. BROMHEXINE HYDROCHLORIDE (BROMHEXINE HYDROCHLORIDE) [Suspect]
     Indication: HEADACHE
     Dosage: (DF), (DF)
     Dates: start: 20080422, end: 20080422
  4. BROMHEXINE HYDROCHLORIDE (BROMHEXINE HYDROCHLORIDE) [Suspect]
     Indication: NASOPHARYNGITIS
     Dosage: (DF), (DF)
     Dates: start: 20080422, end: 20080422
  5. BROMHEXINE HYDROCHLORIDE (BROMHEXINE HYDROCHLORIDE) [Suspect]
     Indication: HEADACHE
     Dosage: (DF), (DF)
     Dates: start: 20080424, end: 20080424
  6. BROMHEXINE HYDROCHLORIDE (BROMHEXINE HYDROCHLORIDE) [Suspect]
     Indication: NASOPHARYNGITIS
     Dosage: (DF), (DF)
     Dates: start: 20080424, end: 20080424

REACTIONS (12)
  - ALANINE AMINOTRANSFERASE INCREASED [None]
  - ASPARTATE AMINOTRANSFERASE INCREASED [None]
  - DISEASE RECURRENCE [None]
  - GENERALISED ERYTHEMA [None]
  - GENITAL RASH [None]
  - HEADACHE [None]
  - NASOPHARYNGITIS [None]
  - ORAL MUCOSAL ERUPTION [None]
  - OVERDOSE [None]
  - PRINZMETAL ANGINA [None]
  - RASH [None]
  - RASH PUSTULAR [None]
